FAERS Safety Report 25060168 (Version 1)
Quarter: 2025Q1

REPORT INFORMATION
  Report Type: Spontaneous
  Country: US (occurrence: US)
  Receive Date: 20250310
  Receipt Date: 20250310
  Transmission Date: 20250409
  Serious: No
  Sender: SANOFI AVENTIS
  Company Number: US-SA-2025SA069995

PATIENT
  Age: 4 Year
  Sex: Male

DRUGS (1)
  1. DUPIXENT [Suspect]
     Active Substance: DUPILUMAB
     Indication: Dermatitis atopic
     Dosage: 300MG+Q4W
     Route: 058
     Dates: start: 202407

REACTIONS (2)
  - Dermatitis atopic [Unknown]
  - Rash erythematous [Unknown]

NARRATIVE: CASE EVENT DATE: 20250201
